FAERS Safety Report 6886755-5 (Version None)
Quarter: 2010Q3

REPORT INFORMATION
  Report Type: 
  Country: None (occurrence: None)
  Receive Date: 20100730
  Receipt Date: 20100722
  Transmission Date: 20110219
  Serious: Yes (Death)
  Sender: FDA-Public Use
  Company Number: US-SHIRE-ALL1-2010-03946

PATIENT

DRUGS (2)
  1. FOSRENOL [Suspect]
     Indication: HYPERPHOSPHATAEMIA
     Dosage: 1000 MG,(WITH EACH MEAL) OTHER
     Route: 048
  2. INSULIN [Concomitant]
     Indication: DIABETES MELLITUS
     Dosage: UNK, UNKNOWN
     Route: 065

REACTIONS (2)
  - MULTI-ORGAN FAILURE [None]
  - MYOCARDIAL INFARCTION [None]
